FAERS Safety Report 4882169-8 (Version None)
Quarter: 2006Q1

REPORT INFORMATION
  Report Type: 
  Country: None (occurrence: None)
  Receive Date: 20060117
  Receipt Date: 20051207
  Transmission Date: 20060701
  Serious: Yes (Death, Hospitalization)
  Sender: FDA-Public Use
  Company Number: US-MERCK-0512USA01400

PATIENT
  Age: 83 Year
  Sex: Female
  Weight: 84 kg

DRUGS (6)
  1. VIOXX [Suspect]
     Indication: ARTHRITIS
     Route: 048
     Dates: start: 20000101, end: 20020926
  2. NITRO-DUR [Concomitant]
     Route: 065
  3. DIGITEK [Concomitant]
     Route: 065
  4. NORFLEX [Concomitant]
     Route: 065
  5. COZAAR [Concomitant]
     Route: 065
  6. NORVASC [Concomitant]
     Route: 065
     Dates: end: 20020801

REACTIONS (13)
  - ARRHYTHMIA [None]
  - ARTERIOSCLEROSIS [None]
  - ARTHRITIS [None]
  - ASTHENIA [None]
  - CARDIAC ARREST [None]
  - CARDIAC FAILURE CONGESTIVE [None]
  - CARDIAC MURMUR [None]
  - CARDIOMYOPATHY [None]
  - CORONARY ARTERY DISEASE [None]
  - DILATATION VENTRICULAR [None]
  - INTESTINAL OBSTRUCTION [None]
  - RENAL FAILURE [None]
  - THERAPEUTIC AGENT TOXICITY [None]
